FAERS Safety Report 15653353 (Version 1)
Quarter: 2018Q4

REPORT INFORMATION
  Report Type: Spontaneous
  Country: US (occurrence: US)
  Receive Date: 20181124
  Receipt Date: 20181124
  Transmission Date: 20190205
  Serious: Yes (Other)
  Sender: FDA-Public Use
  Company Number: US-ALVOGEN-2018-ALVOGEN-097277

PATIENT
  Sex: Female
  Weight: 82.1 kg

DRUGS (7)
  1. METOPROLOL. [Suspect]
     Active Substance: METOPROLOL
     Indication: BLOOD PRESSURE MEASUREMENT
     Dates: start: 2017
  2. COREG [Concomitant]
     Active Substance: CARVEDILOL
     Indication: HEART RATE DECREASED
     Route: 048
  3. LISINOPRIL. [Suspect]
     Active Substance: LISINOPRIL
     Indication: HYPERTENSION
     Dosage: TWO TIMES A DAY (BID)
     Route: 048
     Dates: start: 201702
  4. FLUTICASONE PROPIONATE/SALMETEROL XINAFOATE [Concomitant]
     Indication: ASTHMA
     Route: 055
  5. LISINOPRIL. [Suspect]
     Active Substance: LISINOPRIL
     Indication: HYPERTENSION
     Route: 048
  6. ATORVASTATIN [Concomitant]
     Active Substance: ATORVASTATIN
     Indication: BLOOD CHOLESTEROL
     Route: 048
     Dates: start: 20170214
  7. ACETYLSALICYLIC ACID [Concomitant]
     Active Substance: ASPIRIN
     Indication: PRODUCT USED FOR UNKNOWN INDICATION
     Route: 048
     Dates: start: 201702

REACTIONS (2)
  - Drug ineffective [Recovered/Resolved]
  - Type 2 diabetes mellitus [Not Recovered/Not Resolved]
